FAERS Safety Report 6085928-1 (Version None)
Quarter: 2009Q1

REPORT INFORMATION
  Report Type: 
  Country: None (occurrence: None)
  Receive Date: 20090217
  Receipt Date: 20080311
  Transmission Date: 20090719
  Serious: Yes (Other)
  Sender: FDA-Public Use
  Company Number: MC200800134

PATIENT
  Age: 70 Year
  Sex: Male

DRUGS (2)
  1. ANGIOMAX [Suspect]
     Indication: ANGIOPLASTY
  2. HYPERTENSION DRUGS [Concomitant]

REACTIONS (6)
  - BLOOD PRESSURE FLUCTUATION [None]
  - BLOOD URINE PRESENT [None]
  - EPISTAXIS [None]
  - HEADACHE [None]
  - MELAENA [None]
  - PLATELET COUNT DECREASED [None]
